FAERS Safety Report 4803789-2 (Version None)
Quarter: 2005Q4

REPORT INFORMATION
  Report Type: 
  Country: None (occurrence: None)
  Receive Date: 20051019
  Receipt Date: 20051010
  Transmission Date: 20060501
  Serious: Yes (Life-Threatening, Hospitalization)
  Sender: FDA-Public Use
  Company Number: ES-MERCK-0510ESP00011

PATIENT
  Age: 66 Year
  Sex: Female

DRUGS (3)
  1. VIOXX [Suspect]
     Indication: OSTEOARTHRITIS
     Route: 048
     Dates: start: 20040426, end: 20041001
  2. ATORVASTATIN CALCIUM [Suspect]
     Route: 048
  3. TRIFLUSAL [Suspect]
     Indication: CEREBROVASCULAR DISORDER
     Route: 048

REACTIONS (1)
  - CEREBRAL INFARCTION [None]
